FAERS Safety Report 10187821 (Version 1)
Quarter: 2014Q2

REPORT INFORMATION
  Report Type: Spontaneous
  Country: US (occurrence: US)
  Receive Date: 20140522
  Receipt Date: 20140522
  Transmission Date: 20141212
  Serious: No
  Sender: FDA-Public Use
  Company Number: US-SA-2013SA106818

PATIENT
  Age: 65 Year
  Sex: Female

DRUGS (2)
  1. LANTUS SOLOSTAR [Suspect]
     Indication: TYPE 2 DIABETES MELLITUS
     Dosage: ONE YEAR AGO DOSE:40 UNIT(S)
     Route: 051
  2. SOLOSTAR [Concomitant]
     Dosage: ONE YEAR AGO

REACTIONS (4)
  - Muscle spasms [Unknown]
  - Neuropathy peripheral [Unknown]
  - Anaemia [Unknown]
  - Headache [Unknown]
